FAERS Safety Report 12818370 (Version 2)
Quarter: 2016Q4

REPORT INFORMATION
  Report Type: Report from Study
  Country: JP (occurrence: JP)
  Receive Date: 20161005
  Receipt Date: 20161104
  Transmission Date: 20170207
  Serious: Yes (Hospitalization, Other)
  Sender: FDA-Public Use
  Company Number: JP-TAKEDA-2016TUS017648

PATIENT
  Age: 70 Year
  Sex: Male
  Weight: 70.6 kg

DRUGS (11)
  1. ELIQUIS [Concomitant]
     Active Substance: APIXABAN
     Indication: ATRIAL FIBRILLATION
     Dosage: 5 MG, BID
     Route: 048
     Dates: start: 20141107
  2. TAMBOCOR [Concomitant]
     Active Substance: FLECAINIDE ACETATE
     Indication: ATRIAL FIBRILLATION
     Dosage: 50 MG, BID
     Route: 048
     Dates: start: 20141220
  3. TATHION [Concomitant]
     Active Substance: GLUTATHIONE
     Indication: CATARACT
     Dosage: 1 GTT, QD
     Route: 047
     Dates: start: 20150328
  4. NEXIUM [Concomitant]
     Active Substance: ESOMEPRAZOLE MAGNESIUM
     Indication: GASTRITIS PROPHYLAXIS
     Dosage: 20 MG, 1/WEEK
     Route: 048
     Dates: start: 20141220
  5. FLIVAS OD [Concomitant]
     Indication: NOCTURIA
     Dosage: 25 MG, QD
     Route: 048
     Dates: start: 20150210
  6. FERROUS SULFATE. [Concomitant]
     Active Substance: FERROUS SULFATE
     Indication: ANAEMIA
     Dosage: 105 MG, BID
     Route: 048
     Dates: start: 20150527
  7. BEPRICOR [Concomitant]
     Active Substance: BEPRIDIL
     Indication: ATRIAL FIBRILLATION
     Dosage: 50 MG, BID
     Route: 048
     Dates: start: 20141107
  8. NE-SOFT [Concomitant]
     Indication: PERIPHERAL VASCULAR DISORDER
     Dosage: 200 MG, QD
     Route: 048
     Dates: start: 20140207
  9. FEBUXOSTAT. [Suspect]
     Active Substance: FEBUXOSTAT
     Indication: HYPERURICAEMIA
     Dosage: 1 DF, QD
     Route: 048
     Dates: start: 20140111, end: 20150511
  10. TAMSULOSIN HYDROCHLORIDE OD [Concomitant]
     Active Substance: TAMSULOSIN HYDROCHLORIDE
     Indication: NOCTURIA
     Dosage: 0.2 MG, QD
     Route: 048
     Dates: start: 20140307
  11. EVIPROSTAT N [Concomitant]
     Active Substance: HERBALS
     Indication: NOCTURIA
     Dosage: 1 DF, TID
     Route: 048
     Dates: start: 20150210

REACTIONS (6)
  - Cardiac ablation [Recovered/Resolved]
  - Gastric ulcer haemorrhage [Recovered/Resolved]
  - Gastric cancer [Not Recovered/Not Resolved]
  - Chillblains [Recovered/Resolved]
  - Wound [Recovered/Resolved]
  - Psoriasis [Recovering/Resolving]

NARRATIVE: CASE EVENT DATE: 20140207
